FAERS Safety Report 15712140 (Version 1)
Quarter: 2018Q4

REPORT INFORMATION
  Report Type: Spontaneous
  Country: PT (occurrence: PT)
  Receive Date: 20181212
  Receipt Date: 20181212
  Transmission Date: 20190205
  Serious: Yes (Hospitalization, Other)
  Sender: FDA-Public Use
  Company Number: PT-LUPIN PHARMACEUTICALS INC.-2018-08585

PATIENT
  Age: 17 Year
  Sex: Female

DRUGS (6)
  1. LAMOTRIGINE. [Suspect]
     Active Substance: LAMOTRIGINE
     Indication: GENERALISED ANXIETY DISORDER
  2. QUETIAPINE. [Concomitant]
     Active Substance: QUETIAPINE
     Indication: GENERALISED ANXIETY DISORDER
  3. PROPRANOLOL [Concomitant]
     Active Substance: PROPRANOLOL HYDROCHLORIDE
     Indication: PANIC DISORDER
     Dosage: UNK
     Route: 065
  4. PROPRANOLOL [Concomitant]
     Active Substance: PROPRANOLOL HYDROCHLORIDE
     Indication: GENERALISED ANXIETY DISORDER
  5. QUETIAPINE. [Concomitant]
     Active Substance: QUETIAPINE
     Indication: PANIC DISORDER
     Dosage: UNK
     Route: 065
  6. LAMOTRIGINE. [Suspect]
     Active Substance: LAMOTRIGINE
     Indication: PANIC DISORDER
     Dosage: UNK
     Route: 065

REACTIONS (1)
  - Lupus-like syndrome [Recovering/Resolving]
